FAERS Safety Report 8297866-4 (Version None)
Quarter: 2012Q2

REPORT INFORMATION
  Report Type: 
  Country: None (occurrence: None)
  Receive Date: 20120419
  Receipt Date: 20120416
  Transmission Date: 20120825
  Serious: Yes (Other)
  Sender: FDA-Public Use
  Company Number: PHHY2012ES031774

PATIENT
  Age: 65 Year
  Sex: Female

DRUGS (1)
  1. ONBREZ [Suspect]
     Dosage: UNK UKN, UNK
     Dates: start: 20111212, end: 20120223

REACTIONS (3)
  - CONJUNCTIVAL IRRITATION [None]
  - JOINT STIFFNESS [None]
  - INSOMNIA [None]
